FAERS Safety Report 6853538-1 (Version None)
Quarter: 2010Q3

REPORT INFORMATION
  Report Type: 
  Country: None (occurrence: None)
  Receive Date: 20100717
  Receipt Date: 20071210
  Transmission Date: 20110219
  Serious: No
  Sender: FDA-Public Use
  Company Number: US-PFIZER INC-2007105411

PATIENT
  Sex: Male
  Weight: 104.09 kg

DRUGS (12)
  1. CHANTIX [Suspect]
     Indication: SMOKING CESSATION THERAPY
     Route: 048
     Dates: start: 20071207
  2. LIPITOR [Concomitant]
     Indication: BLOOD CHOLESTEROL
  3. TOPROL-XL [Concomitant]
     Indication: BLOOD PRESSURE
  4. KLONOPIN [Concomitant]
  5. ACETYLSALICYLIC ACID [Concomitant]
  6. SOMA [Concomitant]
     Indication: PAIN
  7. SOMA [Concomitant]
     Indication: MUSCLE SPASMS
  8. ZANTAC [Concomitant]
     Indication: DYSPEPSIA
  9. ZYRTEC [Concomitant]
     Indication: HYPERSENSITIVITY
  10. NEURONTIN [Concomitant]
  11. HYDROCODONE [Concomitant]
  12. ANTIDEPRESSANTS [Concomitant]
     Indication: DEPRESSION

REACTIONS (4)
  - DRY MOUTH [None]
  - DYSGEUSIA [None]
  - HEADACHE [None]
  - NAUSEA [None]
